FAERS Safety Report 9097478 (Version 1)
Quarter: 2013Q1

REPORT INFORMATION
  Report Type: Spontaneous
  Country: US (occurrence: CA)
  Receive Date: 20130212
  Receipt Date: 20130212
  Transmission Date: 20140127
  Serious: Yes (Hospitalization)
  Sender: FDA-Public Use
  Company Number: US-009507513-1207USA010354

PATIENT
  Age: 53 Year
  Sex: Male

DRUGS (13)
  1. JANUVIA [Suspect]
     Route: 048
  2. METOPROLOL [Suspect]
     Route: 048
  3. PLACEBO [Suspect]
  4. SUNITINIB MALATE [Suspect]
     Dosage: 50 MG, QD (WEEKS 1-4)
     Route: 048
  5. SUNITINIB MALATE [Suspect]
     Dosage: TOTAL DOSE 1400 MG
  6. NEXAVAR [Suspect]
     Dosage: 400 MG, BID, TOTAL DOSE 33600 MG
     Route: 048
  7. GLICLAZIDE [Suspect]
     Dosage: UNKNOWN
  8. AVANDAMET [Suspect]
  9. LEVEMIR [Suspect]
  10. LISINOPRIL [Concomitant]
  11. AVALIDE [Concomitant]
  12. ASPIRIN [Concomitant]
  13. CADUET [Concomitant]

REACTIONS (2)
  - Metabolic acidosis [Unknown]
  - Hypoglycaemia [Unknown]
